FAERS Safety Report 10485559 (Version 2)
Quarter: 2014Q4

REPORT INFORMATION
  Report Type: Spontaneous
  Country: IT (occurrence: IT)
  Receive Date: 20140930
  Receipt Date: 20141107
  Transmission Date: 20150528
  Serious: Yes (Hospitalization)
  Sender: FDA-Public Use
  Company Number: IT-BRISTOL-MYERS SQUIBB COMPANY-21433610

PATIENT
  Age: 80 Year
  Sex: Female

DRUGS (12)
  1. LASIX [Concomitant]
     Active Substance: FUROSEMIDE
  2. XANAX [Concomitant]
     Active Substance: ALPRAZOLAM
  3. LIMPIDEX [Concomitant]
     Active Substance: LANSOPRAZOLE
  4. DIBASE [Concomitant]
     Active Substance: CHOLECALCIFEROL
  5. ANSIMAR [Concomitant]
     Active Substance: DOXOFYLLINE
  6. CRESTOR [Concomitant]
     Active Substance: ROSUVASTATIN CALCIUM
  7. HUMALOG [Concomitant]
     Active Substance: INSULIN LISPRO
  8. LANOXIN [Concomitant]
     Active Substance: DIGOXIN
  9. COUMADIN [Suspect]
     Active Substance: WARFARIN SODIUM
     Indication: ATRIAL FIBRILLATION
     Route: 048
     Dates: start: 20140101, end: 20140913
  10. LUVION [Concomitant]
     Active Substance: CANRENONE
  11. CONGESCOR [Concomitant]
     Active Substance: BISOPROLOL
  12. LANTUS [Concomitant]
     Active Substance: INSULIN GLARGINE

REACTIONS (2)
  - Traumatic haemorrhage [Not Recovered/Not Resolved]
  - Fall [Not Recovered/Not Resolved]

NARRATIVE: CASE EVENT DATE: 20140913
